FAERS Safety Report 25230052 (Version 1)
Quarter: 2025Q2

REPORT INFORMATION
  Report Type: Spontaneous
  Country: US (occurrence: None)
  Receive Date: 20250423
  Receipt Date: 20250423
  Transmission Date: 20250717
  Serious: Yes (Hospitalization)
  Sender: FDA-CTU
  Company Number: None

PATIENT
  Sex: Male

DRUGS (4)
  1. LENALIDOMIDE [Suspect]
     Active Substance: LENALIDOMIDE
     Indication: Plasma cell myeloma
     Dosage: FREQUENCY : DAILY;?
     Route: 048
     Dates: start: 20250328
  2. DARZALEX SOL 100/SML [Concomitant]
  3. LENALIDOMIDE [Concomitant]
     Active Substance: LENALIDOMIDE
  4. VELCADE [Concomitant]
     Active Substance: BORTEZOMIB

REACTIONS (2)
  - Renal disorder [None]
  - Therapy cessation [None]
